FAERS Safety Report 5514410-2 (Version None)
Quarter: 2007Q4

REPORT INFORMATION
  Report Type: 
  Country: None (occurrence: None)
  Receive Date: 20071113
  Receipt Date: 20070511
  Transmission Date: 20080405
  Serious: No
  Sender: FDA-Public Use
  Company Number: A0650997A

PATIENT
  Sex: Female

DRUGS (3)
  1. COREG [Suspect]
     Indication: HYPERTENSION
     Dosage: 6.25MG PER DAY
     Route: 048
     Dates: start: 20070507
  2. ALLERGY MEDICATION [Concomitant]
  3. UNKNOWN MEDICATION [Concomitant]

REACTIONS (1)
  - URINE OUTPUT DECREASED [None]
